FAERS Safety Report 5701274-7 (Version None)
Quarter: 2008Q2

REPORT INFORMATION
  Report Type: 
  Country: None (occurrence: None)
  Receive Date: 20080410
  Receipt Date: 20080329
  Transmission Date: 20081010
  Serious: Yes (Other)
  Sender: FDA-Public Use
  Company Number: US-PFIZER INC-2008028356

PATIENT
  Sex: Female

DRUGS (1)
  1. CHANTIX [Suspect]
     Indication: SMOKING CESSATION THERAPY

REACTIONS (4)
  - HYPOAESTHESIA [None]
  - INSOMNIA [None]
  - PAIN [None]
  - PARAESTHESIA [None]
